FAERS Safety Report 5420657-6 (Version None)
Quarter: 2007Q3

REPORT INFORMATION
  Report Type: 
  Country: None (occurrence: None)
  Receive Date: 20070821
  Receipt Date: 20070820
  Transmission Date: 20080115
  Serious: Yes (Hospitalization)
  Sender: FDA-Public Use
  Company Number: US-BRISTOL-MYERS SQUIBB COMPANY-13858840

PATIENT
  Age: 71 Year
  Sex: Female

DRUGS (1)
  1. TEQUIN [Suspect]

REACTIONS (1)
  - HYPOGLYCAEMIA [None]
